FAERS Safety Report 4840101-7 (Version None)
Quarter: 2005Q4

REPORT INFORMATION
  Report Type: 
  Country: None (occurrence: None)
  Receive Date: 20051125
  Receipt Date: 20051107
  Transmission Date: 20060501
  Serious: Yes (Other)
  Sender: FDA-Public Use
  Company Number: DSA_81470_2005

PATIENT
  Age: 46 Year
  Sex: Female

DRUGS (4)
  1. XYREM [Suspect]
     Indication: NARCOLEPSY
     Dosage: 2.25 MG TWICE NIGHTLY PO
     Route: 048
     Dates: start: 20051106
  2. RITALIN [Concomitant]
  3. ALLEGRA [Concomitant]
  4. PROVIGIL [Concomitant]

REACTIONS (1)
  - MENINGITIS [None]
